FAERS Safety Report 8867652 (Version 1)
Quarter: 2012Q4

REPORT INFORMATION
  Report Type: 
  Country: US (occurrence: US)
  Receive Date: 20121025
  Receipt Date: 20121025
  Transmission Date: 20130627
  Serious: No
  Sender: FDA-Public Use
  Company Number: US-AMGEN-USASP2012017856

PATIENT
  Age: 46 Year
  Sex: Female

DRUGS (25)
  1. ENBREL [Suspect]
     Indication: PRODUCT USED FOR UNKNOWN INDICATION
     Dosage: 50 mg, qwk
     Route: 058
  2. GABAPENTIN [Concomitant]
     Dosage: 100 mg, UNK
  3. HYDROCODONE/APAP [Concomitant]
     Dosage: UNK
  4. KETOCONAZOLE [Concomitant]
     Dosage: 2 %, UNK
  5. DESONIDE [Concomitant]
     Dosage: 0.05 %, UNK
  6. KETOCONAZOLE [Concomitant]
     Dosage: 2 %, UNK
  7. RANEXA [Concomitant]
     Dosage: 500 mg, UNK
  8. CELEBREX [Concomitant]
     Dosage: 50 mg, UNK
  9. OMEPRAZOLE [Concomitant]
     Dosage: 40 mg, UNK
  10. FERROUS SULFATE [Concomitant]
     Dosage: UNK
  11. METHOTREXATE [Concomitant]
     Dosage: 2.5 mg, UNK
  12. VITAMIN D3 [Concomitant]
     Dosage: UNK
  13. SUPER B COMPLEX                    /01995301/ [Concomitant]
     Dosage: UNK
  14. GRAPE SEED [Concomitant]
  15. FOLIC ACID [Concomitant]
     Dosage: 1 mg, UNK
  16. ARMOUR THYROID [Concomitant]
     Dosage: 15 mg, UNK
  17. SINGULAIR [Concomitant]
     Dosage: 10 mg, UNK
  18. LORATADINE [Concomitant]
     Dosage: 10 mg, UNK
  19. ZETIA [Concomitant]
     Dosage: 10 mg, UNK
  20. SIMVASTATIN [Concomitant]
     Dosage: 5 mg, UNK
  21. LISINOPRIL [Concomitant]
     Dosage: 2.5 mg, UNK
  22. ALPRAZOLAM [Concomitant]
     Dosage: 1 mg, UNK
  23. LEXAPRO [Concomitant]
     Dosage: 5 mg, UNK
  24. ALENDRONATE [Concomitant]
     Dosage: 5 mg, UNK
  25. CLONAZEPAM [Concomitant]
     Dosage: 1 mg, UNK

REACTIONS (2)
  - Menstruation irregular [Unknown]
  - Menopause [Unknown]
